FAERS Safety Report 15751885 (Version 3)
Quarter: 2018Q4

REPORT INFORMATION
  Report Type: Spontaneous
  Country: US (occurrence: US)
  Receive Date: 20181221
  Receipt Date: 20181227
  Transmission Date: 20190205
  Serious: Yes (Hospitalization, Other)
  Sender: FDA-Public Use
  Company Number: US-AMGEN-USASP2018178751

PATIENT
  Age: 43 Year
  Sex: Female

DRUGS (2)
  1. ENBREL [Suspect]
     Active Substance: ETANERCEPT
     Indication: PSORIASIS
     Dosage: 50 MG, 2 TIMES/WK
     Route: 065
     Dates: start: 201205, end: 2012
  2. ENBREL [Suspect]
     Active Substance: ETANERCEPT
     Dosage: 50 MG, QWK
     Route: 065
     Dates: start: 2012

REACTIONS (7)
  - Uterine haemorrhage [Unknown]
  - Off label use [Unknown]
  - Musculoskeletal disorder [Not Recovered/Not Resolved]
  - Infection [Not Recovered/Not Resolved]
  - Tumour rupture [Unknown]
  - Pneumonia [Recovered/Resolved]
  - Uterine leiomyoma [Unknown]

NARRATIVE: CASE EVENT DATE: 2012
